FAERS Safety Report 9895990 (Version 2)
Quarter: 2014Q1

REPORT INFORMATION
  Report Type: Spontaneous
  Country: US (occurrence: US)
  Receive Date: 20140213
  Receipt Date: 20140213
  Transmission Date: 20141002
  Serious: No
  Sender: FDA-Public Use
  Company Number: US-BRISTOL-MYERS SQUIBB COMPANY-18766840

PATIENT
  Age: 40 Year
  Sex: Female

DRUGS (1)
  1. ABATACEPT SUBQ INJECTION 125MG/ML [Suspect]
     Dosage: LAST DOSE:02APR2013
     Route: 058
     Dates: start: 201208

REACTIONS (7)
  - Drug ineffective [Unknown]
  - Dry mouth [Unknown]
  - Nasal congestion [Unknown]
  - Eye disorder [Unknown]
  - Dyspnoea [Unknown]
  - Pruritus [Unknown]
  - Poor quality sleep [Unknown]
